FAERS Safety Report 9389013 (Version 3)
Quarter: 2015Q2

REPORT INFORMATION
  Report Type: Report from Study
  Country: US (occurrence: US)
  Receive Date: 20130708
  Receipt Date: 20150602
  Transmission Date: 20150821
  Serious: Yes (Hospitalization)
  Sender: FDA-Public Use
  Company Number: US-PFIZER INC-2013198323

PATIENT
  Age: 59 Year
  Sex: Female
  Weight: 90.34 kg

DRUGS (18)
  1. NICOTINE. [Suspect]
     Active Substance: NICOTINE
     Dosage: 14 MG, 1X/DAY
     Route: 062
     Dates: start: 20130329, end: 20130411
  2. DEPAKOTE [Concomitant]
     Active Substance: DIVALPROEX SODIUM
     Indication: BIPOLAR DISORDER
     Dosage: UNK
  3. IBUPROFEN. [Concomitant]
     Active Substance: IBUPROFEN
     Indication: ARTHRITIS
     Dosage: UNK
  4. GABAPENTIN. [Concomitant]
     Active Substance: GABAPENTIN
     Indication: PAIN IN EXTREMITY
     Dosage: UNK
  5. AMLODIPINE BESILATE [Suspect]
     Active Substance: AMLODIPINE BESYLATE
     Indication: HYPERTENSION
     Dosage: 10 MG, 1X/DAY
     Route: 048
     Dates: start: 2012
  6. ZOLOFT [Concomitant]
     Active Substance: SERTRALINE HYDROCHLORIDE
     Indication: BIPOLAR DISORDER
     Dosage: UNK
  7. MELATONIN [Concomitant]
     Active Substance: MELATONIN
     Indication: SLEEP DISORDER
     Dosage: UNK
  8. RISPERDAL [Concomitant]
     Active Substance: RISPERIDONE
     Indication: BIPOLAR DISORDER
     Dosage: UNK
  9. IBUPROFEN. [Concomitant]
     Active Substance: IBUPROFEN
     Indication: MIGRAINE
  10. MELATONIN [Concomitant]
     Active Substance: MELATONIN
     Indication: INSOMNIA
  11. CALCIUM WITH VITAMIN D [Concomitant]
     Active Substance: CALCIUM\VITAMIN D
     Indication: NUTRITIONAL SUPPLEMENTATION
     Dosage: UNK
  12. GABAPENTIN. [Concomitant]
     Active Substance: GABAPENTIN
     Indication: ARTHRALGIA
  13. PRAVASTATIN [Concomitant]
     Active Substance: PRAVASTATIN\PRAVASTATIN SODIUM
     Indication: HYPERCHOLESTEROLAEMIA
     Dosage: UNK
  14. ASPIRIN. [Suspect]
     Active Substance: ASPIRIN
     Indication: CARDIOVASCULAR EVENT PROPHYLAXIS
     Dosage: 81 MG, 1X/DAY
     Route: 048
     Dates: start: 2011
  15. NICOTINE. [Suspect]
     Active Substance: NICOTINE
     Indication: SMOKING CESSATION THERAPY
     Dosage: 21 MG, 1X/DAY
     Route: 062
     Dates: start: 20130208, end: 20130328
  16. NICOTINE. [Suspect]
     Active Substance: NICOTINE
     Dosage: 7 MG, 1X/DAY
     Route: 062
     Dates: start: 20130412, end: 20130426
  17. LISINOPRIL. [Concomitant]
     Active Substance: LISINOPRIL
     Indication: HYPERTENSION
     Dosage: UNK
  18. METFORMIN [Concomitant]
     Active Substance: METFORMIN HYDROCHLORIDE
     Indication: TYPE 2 DIABETES MELLITUS
     Dosage: UNK

REACTIONS (1)
  - Non-cardiac chest pain [Recovered/Resolved]

NARRATIVE: CASE EVENT DATE: 20130629
